FAERS Safety Report 8941294 (Version 1)
Quarter: 2012Q4

REPORT INFORMATION
  Report Type: 
  Country: US (occurrence: US)
  Receive Date: 20121203
  Receipt Date: 20121203
  Transmission Date: 20130627
  Serious: No
  Sender: FDA-Public Use
  Company Number: US-BAYER-2012-117104

PATIENT
  Age: 50 Year
  Sex: Female
  Weight: 56.69 kg

DRUGS (7)
  1. BETASERON [Suspect]
     Indication: PRODUCT USED FOR UNKNOWN INDICATION
     Dosage: UNK
     Dates: start: 201207
  2. AMPYRA [Suspect]
     Indication: GAIT DISTURBANCE
     Dosage: 10 mg, BID
     Route: 048
     Dates: start: 201203
  3. LEXAPRO [Suspect]
     Indication: PRODUCT USED FOR UNKNOWN INDICATION
     Dosage: UNK
     Dates: start: 201208, end: 20121002
  4. PROZAC [Suspect]
     Indication: PRODUCT USED FOR UNKNOWN INDICATION
     Dosage: UNK
     Dates: start: 20121002
  5. METOPROLOL [Concomitant]
     Dosage: 50 mg, UNK
  6. ASPIRIN [Concomitant]
     Dosage: UNK
  7. FOSAMAX [Concomitant]
     Dosage: UNK

REACTIONS (2)
  - Sluggishness [Not Recovered/Not Resolved]
  - Fatigue [None]
